FAERS Safety Report 10013643 (Version 1)
Quarter: 2014Q1

REPORT INFORMATION
  Report Type: Spontaneous
  Country: US (occurrence: US)
  Receive Date: 20140315
  Receipt Date: 20140315
  Transmission Date: 20141002
  Serious: No
  Sender: FDA-Public Use
  Company Number: US-B.I. PHARMACEUTICALS,INC./RIDGEFIELD-2014-BI-09641BP

PATIENT
  Sex: Male

DRUGS (8)
  1. SPIRIVA [Suspect]
     Indication: PRODUCT USED FOR UNKNOWN INDICATION
     Route: 065
  2. ARCAPTA [Suspect]
     Indication: PRODUCT USED FOR UNKNOWN INDICATION
     Route: 065
  3. ALBUTEROL [Concomitant]
     Route: 065
  4. NOSE SPRAY [Concomitant]
     Indication: SINUS DISORDER
     Route: 065
  5. GLUCOSAMINE CHONDROITIN [Concomitant]
     Indication: ARTHRITIS
     Route: 065
  6. ALEVE [Concomitant]
     Indication: ARTHRITIS
     Route: 065
  7. BABY ASPIRIN [Concomitant]
     Route: 065
  8. ALLOPURINOL [Concomitant]
     Indication: GOUT
     Route: 065

REACTIONS (5)
  - Sluggishness [Unknown]
  - Dyspnoea [Unknown]
  - Activities of daily living impaired [Unknown]
  - Swelling [Unknown]
  - Fluid retention [Unknown]
